FAERS Safety Report 24164586 (Version 3)
Quarter: 2024Q4

REPORT INFORMATION
  Report Type: Spontaneous
  Country: US (occurrence: US)
  Receive Date: 20240801
  Receipt Date: 20241115
  Transmission Date: 20250114
  Serious: Yes (Other)
  Sender: BRISTOL-MYERS SQUIBB COMPANY
  Company Number: US-BRISTOL-MYERS SQUIBB COMPANY-2024-119524

PATIENT
  Age: 55 Year
  Sex: Female
  Weight: 77.61 kg

DRUGS (1)
  1. POMALYST [Suspect]
     Active Substance: POMALIDOMIDE
     Indication: Plasma cell myeloma
     Dosage: 14 ON 14 OFF/ 2 WEEKS ON AND 2 WEEKS OFF
     Route: 048
     Dates: start: 20240121

REACTIONS (10)
  - Escherichia urinary tract infection [Recovered/Resolved]
  - Off label use [Unknown]
  - Decreased appetite [Unknown]
  - Fatigue [Unknown]
  - Alopecia [Unknown]
  - Taste disorder [Unknown]
  - Pyrexia [Unknown]
  - Hypocalcaemia [Unknown]
  - Hypomagnesaemia [Unknown]
  - Appetite disorder [Unknown]

NARRATIVE: CASE EVENT DATE: 20240621
